FAERS Safety Report 8073033-4 (Version None)
Quarter: 2012Q1

REPORT INFORMATION
  Report Type: 
  Country: None (occurrence: None)
  Receive Date: 20120126
  Receipt Date: 20120118
  Transmission Date: 20120608
  Serious: Yes (Hospitalization)
  Sender: FDA-Public Use
  Company Number: US-BRISTOL-MYERS SQUIBB COMPANY-15571334

PATIENT
  Age: 55 Year
  Sex: Female

DRUGS (8)
  1. METHOTREXATE [Suspect]
     Indication: RHEUMATOID ARTHRITIS
     Dosage: 20MG 9/WEEK 9MAR11-16MAR11
     Dates: start: 20090508, end: 20110316
  2. TEGRETOL [Concomitant]
     Indication: TRIGEMINAL NEURALGIA
     Route: 048
     Dates: start: 19860101
  3. IBUPROFEN (ADVIL) [Concomitant]
     Indication: RHEUMATOID ARTHRITIS
     Route: 048
     Dates: start: 20080101
  4. ABATACEPT [Suspect]
     Indication: RHEUMATOID ARTHRITIS
     Route: 058
     Dates: start: 20100208
  5. DICLOFENAC EPOLAMINE [Concomitant]
     Indication: RHEUMATOID ARTHRITIS
     Route: 048
     Dates: start: 20080128
  6. MUCINEX [Concomitant]
     Dosage: 1 DF = 1 TABS
     Route: 048
     Dates: start: 20110208, end: 20110213
  7. FOLIC ACID [Concomitant]
     Indication: RHEUMATOID ARTHRITIS
     Route: 048
     Dates: start: 20090508
  8. ACETAMINOPHEN [Concomitant]
     Indication: RHEUMATOID ARTHRITIS
     Route: 048
     Dates: start: 20080101

REACTIONS (2)
  - PNEUMONIA MYCOPLASMAL [None]
  - BRONCHOSPASM [None]
